FAERS Safety Report 11466083 (Version 1)
Quarter: 2015Q3

REPORT INFORMATION
  Report Type: Spontaneous
  Country: US (occurrence: US)
  Receive Date: 20150907
  Receipt Date: 20150907
  Transmission Date: 20151125
  Serious: No
  Sender: FDA-Public Use
  Company Number: US-009507513-1509USA002778

PATIENT
  Age: 61 Year
  Sex: Female

DRUGS (15)
  1. NOVOLOG MIX 70/30 [Concomitant]
     Active Substance: INSULIN ASPART
  2. CIPRO [Concomitant]
     Active Substance: CIPROFLOXACIN HYDROCHLORIDE
  3. VITAMIN D [Concomitant]
     Active Substance: CHOLECALCIFEROL
  4. FUROSEMIDE. [Concomitant]
     Active Substance: FUROSEMIDE
  5. MAGNESIUM OXIDE. [Concomitant]
     Active Substance: MAGNESIUM OXIDE
  6. CATAFLAM [Concomitant]
     Active Substance: DICLOFENAC POTASSIUM
  7. LACTULOSE. [Concomitant]
     Active Substance: LACTULOSE
  8. ZOLOFT [Concomitant]
     Active Substance: SERTRALINE HYDROCHLORIDE
  9. PEGASYS [Suspect]
     Active Substance: PEGINTERFERON ALFA-2A
  10. SPIRONOLACTONE. [Concomitant]
     Active Substance: SPIRONOLACTONE
  11. XIFAXAN [Concomitant]
     Active Substance: RIFAXIMIN
  12. ALPRAZOLAM. [Concomitant]
     Active Substance: ALPRAZOLAM
  13. REBETOL [Suspect]
     Active Substance: RIBAVIRIN
     Indication: HEPATITIS C
     Dosage: UNK
     Route: 048
  14. KLOR-CON [Concomitant]
     Active Substance: POTASSIUM CHLORIDE
  15. ACYCLOVIR. [Concomitant]
     Active Substance: ACYCLOVIR

REACTIONS (3)
  - Headache [Recovered/Resolved]
  - Hyperacusis [Recovered/Resolved]
  - Pain [Recovered/Resolved]
